FAERS Safety Report 5863260-6 (Version None)
Quarter: 2008Q3

REPORT INFORMATION
  Report Type: 
  Country: None (occurrence: None)
  Receive Date: 20080828
  Receipt Date: 20080818
  Transmission Date: 20090109
  Serious: Yes (Hospitalization)
  Sender: FDA-Public Use
  Company Number: ES-ROCHE-579950

PATIENT
  Age: 34 Year
  Sex: Male

DRUGS (8)
  1. PEGASYS [Suspect]
     Indication: HEPATITIS C
     Dosage: FORM: PREFILLED SYRINGES, STRENGTH REPORTED AS: 180 MCG.
     Route: 058
     Dates: start: 20080327, end: 20080430
  2. PEGASYS [Suspect]
     Dosage: STRENGTH: 135 MCG.
     Route: 058
     Dates: start: 20080430, end: 20080630
  3. COPEGUS [Interacting]
     Indication: HEPATITIS C
     Dosage: FORMULATION: FILM COATED TABLET.
     Route: 048
     Dates: start: 20080327, end: 20080507
  4. COPEGUS [Interacting]
     Route: 048
     Dates: start: 20080507, end: 20080630
  5. COMBIVIR [Interacting]
     Indication: HIV INFECTION
     Dosage: STRENGTH: 150/300 MG DOSING REGIMEN: 2 FIX DOSES/DAY
     Route: 048
     Dates: start: 20030101, end: 20080630
  6. VIRAMUNE [Concomitant]
     Indication: HIV INFECTION
     Dosage: DOSING REGIMEN: 2 FIX DOSES DAILY
     Route: 048
     Dates: start: 20030101
  7. IDALPREM [Concomitant]
     Route: 048
     Dates: start: 20080101
  8. METHADONE HCL [Concomitant]
     Route: 048
     Dates: start: 20030101

REACTIONS (4)
  - ANAEMIA [None]
  - DRUG INTERACTION [None]
  - HAEMOLYTIC ANAEMIA [None]
  - NEUTROPENIA [None]
